FAERS Safety Report 6716540-6 (Version None)
Quarter: 2010Q2

REPORT INFORMATION
  Report Type: 
  Country: None (occurrence: None)
  Receive Date: 20100507
  Receipt Date: 20100426
  Transmission Date: 20101027
  Serious: Yes (Life-Threatening, Hospitalization, Other)
  Sender: FDA-Public Use
  Company Number: US-ELI_LILLY_AND_COMPANY-US201004007560

PATIENT
  Age: 12 Year
  Sex: Female

DRUGS (2)
  1. STRATTERA [Suspect]
     Dosage: 1 D/F, UNK
  2. TYLENOL (CAPLET) [Concomitant]

REACTIONS (3)
  - LOSS OF CONSCIOUSNESS [None]
  - OVERDOSE [None]
  - VOMITING [None]
